FAERS Safety Report 5151749-7 (Version None)
Quarter: 2006Q4

REPORT INFORMATION
  Report Type: 
  Country: None (occurrence: None)
  Receive Date: 20061107
  Receipt Date: 20061024
  Transmission Date: 20070319
  Serious: Yes (Hospitalization, Other)
  Sender: FDA-Public Use
  Company Number: CHNY2006GB02916

PATIENT
  Age: 72 Year
  Sex: Female

DRUGS (10)
  1. NICOTINELL TTS [Suspect]
     Indication: SMOKING CESSATION THERAPY
     Dosage: 14 MG, TRANSDERMAL
     Route: 062
     Dates: start: 20060626, end: 20060710
  2. ADCAL-D3                    (CALCIUM CARBONATE, COLECALCIFEROL) [Concomitant]
  3. AMLODIPINE [Concomitant]
  4. CYCLOSPORINE [Concomitant]
  5. CLEXANE                (ENOXAPARIN SODIUM, HEPARIN-FRACTION, SODIUM SA [Concomitant]
  6. CLONAZEPAM [Concomitant]
  7. OMEPRAZOLE [Concomitant]
  8. RISEDRONATE SODIUM [Concomitant]
  9. SIMVASTATIN [Concomitant]
  10. VALPROATE SODIUM [Concomitant]

REACTIONS (2)
  - CONCOMITANT DISEASE AGGRAVATED [None]
  - CONVULSION [None]
